FAERS Safety Report 4895312-1 (Version None)
Quarter: 2006Q1

REPORT INFORMATION
  Report Type: 
  Country: None (occurrence: None)
  Receive Date: 20060130
  Receipt Date: 20041105
  Transmission Date: 20060701
  Serious: Yes (Hospitalization)
  Sender: FDA-Public Use
  Company Number: US-MERCK-0411USA01395

PATIENT
  Age: 57 Year
  Sex: Male
  Weight: 93 kg

DRUGS (6)
  1. VIOXX [Suspect]
     Indication: ARTHRALGIA
     Route: 048
     Dates: start: 20010701, end: 20041001
  2. VIOXX [Suspect]
     Indication: TENDONITIS
     Route: 048
     Dates: start: 20010701, end: 20041001
  3. ALLOPURINOL [Concomitant]
     Route: 065
  4. PREVACID [Concomitant]
     Route: 065
  5. TYLENOL ARTHRITIS EXTENDED RELIEF [Concomitant]
     Route: 065
  6. COLCHICINE [Concomitant]
     Indication: GOUT
     Route: 065

REACTIONS (14)
  - ACUTE MYOCARDIAL INFARCTION [None]
  - CHEST PAIN [None]
  - CORONARY ARTERY DISEASE [None]
  - DIVERTICULUM [None]
  - ECCHYMOSIS [None]
  - EPIDIDYMITIS [None]
  - GASTROOESOPHAGEAL REFLUX DISEASE [None]
  - HAEMORRHOIDS [None]
  - HYPERTENSION [None]
  - HYPOKALAEMIA [None]
  - NEPHROLITHIASIS [None]
  - TESTICULAR SWELLING [None]
  - THROMBOSIS [None]
  - WEIGHT INCREASED [None]
